FAERS Safety Report 5044172-7 (Version None)
Quarter: 2006Q3

REPORT INFORMATION
  Report Type: 
  Country: None (occurrence: None)
  Receive Date: 20060706
  Receipt Date: 20060623
  Transmission Date: 20061208
  Serious: Yes (Other)
  Sender: FDA-Public Use
  Company Number: JP-MERCK-0606USA05682

PATIENT
  Age: 72 Year
  Sex: Female

DRUGS (8)
  1. PEPCID [Suspect]
     Route: 048
  2. ACTOS [Suspect]
     Route: 048
  3. LIPITOR [Suspect]
     Indication: HYPERCHOLESTEROLAEMIA
     Route: 048
  4. NORVASC [Concomitant]
     Route: 048
  5. AMARYL [Concomitant]
     Route: 048
  6. SUCRALFATE [Concomitant]
     Route: 048
  7. HERBS (UNSPECIFIED) [Concomitant]
     Route: 048
  8. [THERAPY UNSPECIFIED] [Concomitant]
     Route: 065

REACTIONS (6)
  - ALANINE AMINOTRANSFERASE INCREASED [None]
  - ASPARTATE AMINOTRANSFERASE INCREASED [None]
  - FACE OEDEMA [None]
  - LIVER DISORDER [None]
  - MALAISE [None]
  - OEDEMA PERIPHERAL [None]
